FAERS Safety Report 6354504-5 (Version None)
Quarter: 2009Q3

REPORT INFORMATION
  Report Type: 
  Country: None (occurrence: None)
  Receive Date: 20090909
  Receipt Date: 20090825
  Transmission Date: 20100115
  Serious: Yes (Hospitalization)
  Sender: FDA-Public Use
  Company Number: 2009-2028

PATIENT
  Sex: Male
  Weight: 60 kg

DRUGS (3)
  1. APO-GO   (APOKYN)    (APOMORPHINE HYDROCHLORIDE) [Suspect]
     Dosage: 5 MG/H FOR 15 HOURS, UNKNOWN
  2. MADOPAR (MADOPAR /00349201/) [Concomitant]
  3. SEROQUEL [Concomitant]

REACTIONS (2)
  - INFECTION [None]
  - RESPIRATORY DEPRESSION [None]
